FAERS Safety Report 25627626 (Version 1)
Quarter: 2025Q3

REPORT INFORMATION
  Report Type: Report from Study
  Country: US (occurrence: US)
  Receive Date: 20250731
  Receipt Date: 20250731
  Transmission Date: 20251021
  Serious: Yes (Other)
  Sender: BAYER HEALTHCARE PHARMACEUTICALS INC.
  Company Number: US-BAYER-2025A088382

PATIENT
  Age: 60 Year
  Sex: Male

DRUGS (6)
  1. NUBEQA [Suspect]
     Active Substance: DAROLUTAMIDE
     Indication: Prostate cancer
     Dosage: 600 MG, BID WITH FOOD
     Route: 048
     Dates: start: 20250629, end: 2025
  2. NUBEQA [Suspect]
     Active Substance: DAROLUTAMIDE
     Indication: Prostate cancer
     Dosage: 600 MG, QD, ONCE A DAY
     Route: 048
     Dates: start: 2025, end: 2025
  3. NUBEQA [Suspect]
     Active Substance: DAROLUTAMIDE
     Indication: Prostate cancer
     Dosage: 600 MG, BID, 9 DAYS
     Dates: start: 2025, end: 2025
  4. NUBEQA [Suspect]
     Active Substance: DAROLUTAMIDE
     Indication: Prostate cancer
     Dosage: 300 MG, QD ONLY IN AM AFTER ABOUT TWO OR THREE DAYS
     Dates: start: 2025, end: 2025
  5. NUBEQA [Suspect]
     Active Substance: DAROLUTAMIDE
     Indication: Prostate cancer
     Dosage: 300 MG, BID, ONE IN AM AND ONE IN PM
     Dates: start: 202507
  6. DEXAMETHASONE [Concomitant]
     Active Substance: DEXAMETHASONE

REACTIONS (6)
  - Angina pectoris [Recovered/Resolved]
  - Cardiac disorder [Recovered/Resolved]
  - Heart rate irregular [Recovered/Resolved]
  - Dyspnoea [None]
  - Constipation [None]
  - Intentional product use issue [Not Recovered/Not Resolved]

NARRATIVE: CASE EVENT DATE: 20250101
